FAERS Safety Report 17545655 (Version 1)
Quarter: 2020Q1

REPORT INFORMATION
  Report Type: Spontaneous
  Country: AR (occurrence: AR)
  Receive Date: 20200316
  Receipt Date: 20200316
  Transmission Date: 20200409
  Serious: Yes (Hospitalization)
  Sender: FDA-Public Use
  Company Number: AR-PFIZER INC-2020112343

PATIENT
  Age: 55 Year
  Sex: Female

DRUGS (2)
  1. IBRANCE [Suspect]
     Active Substance: PALBOCICLIB
     Indication: BREAST CANCER METASTATIC
     Dosage: 125 MG, DAILY SCHEME 3X1
     Dates: start: 20191225
  2. LETROZOLE. [Concomitant]
     Active Substance: LETROZOLE

REACTIONS (3)
  - Speech disorder [Unknown]
  - Headache [Unknown]
  - Mobility decreased [Unknown]

NARRATIVE: CASE EVENT DATE: 20191225
